FAERS Safety Report 9540720 (Version 5)
Quarter: 2013Q4

REPORT INFORMATION
  Report Type: Report from Study
  Country: US (occurrence: US)
  Receive Date: 20130920
  Receipt Date: 20131023
  Transmission Date: 20140711
  Serious: Yes (Hospitalization)
  Sender: FDA-Public Use
  Company Number: US-PFIZER INC-2013264229

PATIENT
  Age: 58 Year
  Sex: Male
  Weight: 90.66 kg

DRUGS (20)
  1. AXITINIB [Suspect]
     Indication: RECTAL CANCER
     Dosage: 5 MG, 2X/DAY
     Route: 048
     Dates: start: 20130226, end: 20130910
  2. OXALIPLATIN [Suspect]
     Indication: RECTAL CANCER
     Dosage: 179 MG, CYCLIC
     Route: 042
     Dates: start: 20120924, end: 20130221
  3. FLUOROURACIL [Suspect]
     Indication: RECTAL CANCER
     Dosage: 844 MG, CYCLIC
     Route: 042
     Dates: start: 20120924, end: 20130221
  4. FLUOROURACIL [Suspect]
     Dosage: 5064 MG, CONTINUOUS INFUSION, CYCLIC
     Route: 042
     Dates: start: 20120924, end: 20130221
  5. BEVACIZUMAB [Suspect]
     Indication: RECTAL CANCER
     Dosage: 473 MG, CYCLIC
     Route: 042
     Dates: start: 20120924, end: 20130221
  6. LEUCOVORIN [Suspect]
     Indication: RECTAL CANCER
     Dosage: 844 MG, CYCLIC
     Route: 042
     Dates: start: 20120924, end: 20130221
  7. AZITHROMYCIN [Suspect]
     Indication: ANTIBIOTIC THERAPY
     Dosage: 500 MG DAILY (1 TAB DAILY)
     Route: 048
     Dates: start: 20130603, end: 20130610
  8. CLINDAMYCIN HCL [Suspect]
     Indication: ANTIBIOTIC THERAPY
     Dosage: 150 MG TAB, 3 TABS EVERY 8 HOURS
     Route: 048
     Dates: start: 20130803, end: 20130813
  9. METRONIDAZOLE [Suspect]
     Indication: ANTIBIOTIC THERAPY
     Dosage: 500 MG (1 TAB) EVERY 8 HOURS
     Route: 048
     Dates: start: 20130817, end: 20130831
  10. BACTRIM [Suspect]
     Indication: ANTIBIOTIC THERAPY
     Dosage: 800 MG TAB (1 TAB TWICE DAILY)
     Route: 048
     Dates: start: 20130418, end: 20130428
  11. BACTRIM [Suspect]
     Dosage: 800 MG TAB (1 TAB TWICE DAILY)
     Route: 048
     Dates: start: 20130716, end: 20130723
  12. CIPRO [Suspect]
     Indication: ANTIBIOTIC THERAPY
     Dosage: 500 MG TAB (1 TAB, TWICE DAILY)
     Route: 048
     Dates: start: 20130601, end: 20130711
  13. LEVOFLOXACIN [Suspect]
     Indication: ANTIBIOTIC THERAPY
     Dosage: 500 MG TAB (1 TAB, DAILY)
     Route: 048
     Dates: start: 20130827, end: 20130901
  14. XANAX [Concomitant]
     Indication: ANXIETY
     Dosage: 0.25 MG
  15. STOOL SOFTENER [Concomitant]
     Indication: CONSTIPATION
     Dosage: 1 DF (TAB), UNK
  16. ZOCOR [Concomitant]
     Indication: HYPERLIPIDAEMIA
     Dosage: 60 MG, UNK
  17. LISINOPRIL [Concomitant]
     Indication: HYPERTENSION
     Dosage: 40 MG, UNK
     Dates: start: 20121214
  18. PROZAC [Concomitant]
     Indication: DEPRESSION
     Dosage: 20 MG, UNK
     Dates: start: 20130520
  19. AMLODIPINE [Concomitant]
     Indication: HYPERTENSION
     Dosage: 10 MG, UNK
  20. METOPROLOL [Concomitant]
     Indication: HYPERTENSION
     Dosage: 100 MG, UNK
     Dates: start: 20130418

REACTIONS (1)
  - Syncope [Recovered/Resolved]
